FAERS Safety Report 15375587 (Version 1)
Quarter: 2018Q3

REPORT INFORMATION
  Report Type: Spontaneous
  Country: JP (occurrence: JP)
  Receive Date: 20180912
  Receipt Date: 20180912
  Transmission Date: 20181010
  Serious: Yes (Hospitalization, Other)
  Sender: FDA-Public Use
  Company Number: JP-ASTRAZENECA-2018SF07648

PATIENT
  Age: 74 Year
  Sex: Male
  Weight: 56 kg

DRUGS (11)
  1. THYRADIN S [Concomitant]
     Active Substance: LEVOTHYROXINE SODIUM
     Indication: HYPOTHYROIDISM
     Dosage: AFTER BREAKFAST
     Route: 048
     Dates: start: 20170306
  2. EPINASTINE. [Concomitant]
     Active Substance: EPINASTINE HYDROCHLORIDE
     Indication: ECZEMA
     Dosage: AFTER DINNER
     Route: 048
     Dates: start: 20171101
  3. PROMAC [Concomitant]
     Active Substance: NITROFURANTOIN
     Indication: GASTRIC ULCER
     Dosage: AFTER BREAKFAST AND DINNER
     Route: 048
     Dates: start: 20170621, end: 20180710
  4. THYRADIN S [Concomitant]
     Active Substance: LEVOTHYROXINE SODIUM
     Indication: HYPOTHYROIDISM
     Dosage: AFTER BREAKFAST
     Route: 048
     Dates: start: 20170204, end: 20170305
  5. BELSOMRA [Concomitant]
     Active Substance: SUVOREXANT
     Dosage: BEFORE BEDTIME
     Route: 048
     Dates: start: 20180713
  6. HEPARINOID [Concomitant]
     Active Substance: CHONDROITIN SULFATE (BOVINE)
     Dosage: DOSE UNKNOWN/ AFTER BATHTIME
     Route: 062
     Dates: start: 20170130
  7. LANSOPRAZOLE. [Concomitant]
     Active Substance: LANSOPRAZOLE
     Dosage: AFTER BREAKFAST
     Route: 048
     Dates: start: 20180705, end: 20180710
  8. TAGRISSO [Suspect]
     Active Substance: OSIMERTINIB
     Indication: NON-SMALL CELL LUNG CANCER
     Route: 048
     Dates: start: 20180629, end: 20180727
  9. PROMAC [Concomitant]
     Active Substance: NITROFURANTOIN
     Indication: GASTRIC ULCER
     Dosage: AFTER BREAKFAST AND DINNER
     Route: 048
     Dates: start: 20180711
  10. URIEF [Concomitant]
     Active Substance: SILODOSIN
     Indication: BENIGN PROSTATIC HYPERPLASIA
     Dosage: AFTER BREAKFAST AND DINNER
     Route: 048
     Dates: start: 20170524
  11. PARIET [Concomitant]
     Active Substance: RABEPRAZOLE SODIUM
     Indication: GASTRIC ULCER
     Dosage: AFTER BREAKFAST
     Route: 048
     Dates: start: 20170215, end: 20180703

REACTIONS (4)
  - Cholangitis [Recovering/Resolving]
  - Cholelithiasis [Unknown]
  - Interstitial lung disease [Recovering/Resolving]
  - Rash [Unknown]

NARRATIVE: CASE EVENT DATE: 20180703
